FAERS Safety Report 7204570-X (Version None)
Quarter: 2010Q4

REPORT INFORMATION
  Report Type: 
  Country: None (occurrence: None)
  Receive Date: 20101230
  Receipt Date: 20101222
  Transmission Date: 20110411
  Serious: Yes (Other)
  Sender: FDA-Public Use
  Company Number: PHHY2010AU78008

PATIENT
  Age: 8 Year
  Sex: Female

DRUGS (2)
  1. METHYLPHENIDATE [Suspect]
     Indication: ATTENTION DEFICIT/HYPERACTIVITY DISORDER
     Dosage: 5 MG IN THE MORNING AND 5 MG AT NOON
     Route: 048
  2. METHYLPHENIDATE [Suspect]
     Dosage: 210 MG (8.75 MG/KG), ONCE/SINGLE

REACTIONS (2)
  - EMOTIONAL DISORDER [None]
  - SUICIDE ATTEMPT [None]
